FAERS Safety Report 24664660 (Version 2)
Quarter: 2024Q4

REPORT INFORMATION
  Report Type: Report from Study
  Country: ZA (occurrence: ZA)
  Receive Date: 20241126
  Receipt Date: 20241224
  Transmission Date: 20250115
  Serious: Yes (Hospitalization, Other)
  Sender: REGENERON
  Company Number: ZA-BAYER-2024A167415

PATIENT
  Sex: Female

DRUGS (1)
  1. EYLEA [Suspect]
     Active Substance: AFLIBERCEPT
     Indication: Neovascular age-related macular degeneration
     Dosage: 1 X VIAL, SOLUTION FOR INJECTION, 40 MG/ML
     Dates: start: 20240911

REACTIONS (2)
  - Illness [Unknown]
  - Neoplasm malignant [Not Recovered/Not Resolved]
